FAERS Safety Report 24989403 (Version 2)
Quarter: 2025Q1

REPORT INFORMATION
  Report Type: Spontaneous
  Country: BE (occurrence: BE)
  Receive Date: 20250220
  Receipt Date: 20250301
  Transmission Date: 20250409
  Serious: Yes (Hospitalization)
  Sender: ABBVIE
  Company Number: BE-FreseniusKabi-FK202502317

PATIENT
  Age: 68 Year
  Sex: Female

DRUGS (2)
  1. ADALIMUMAB [Suspect]
     Active Substance: ADALIMUMAB
     Indication: Rheumatoid arthritis
     Route: 058
  2. CIPROFLOXACIN [Concomitant]
     Active Substance: CIPROFLOXACIN
     Indication: Pseudomonas infection
     Route: 065

REACTIONS (7)
  - Granuloma [Recovered/Resolved]
  - Sarcoidosis [Recovered/Resolved]
  - Spleen disorder [Recovered/Resolved]
  - Hypermetabolism [Recovered/Resolved]
  - Neutropenia [Recovered/Resolved]
  - Hilar lymphadenopathy [Recovered/Resolved]
  - Lymphadenopathy mediastinal [Recovered/Resolved]
